FAERS Safety Report 22911958 (Version 3)
Quarter: 2024Q3

REPORT INFORMATION
  Report Type: Report from Study
  Country: IT (occurrence: IT)
  Receive Date: 20230906
  Receipt Date: 20240925
  Transmission Date: 20241017
  Serious: Yes (Other)
  Sender: TAKEDA
  Company Number: IT-TAKEDA-2022TUS098389

PATIENT
  Age: 53 Year
  Sex: Male
  Weight: 78 kg

DRUGS (10)
  1. LANADELUMAB [Suspect]
     Active Substance: LANADELUMAB
     Indication: Hereditary angioedema
     Dosage: 300 MILLIGRAM, Q2WEEKS
     Route: 065
     Dates: start: 20210715, end: 20210728
  2. LANADELUMAB [Suspect]
     Active Substance: LANADELUMAB
     Dosage: 300 MILLIGRAM, Q2WEEKS
     Route: 065
     Dates: start: 20210729, end: 20230822
  3. LANADELUMAB [Suspect]
     Active Substance: LANADELUMAB
     Dosage: 300 MILLIGRAM, Q4WEEKS
     Route: 065
     Dates: start: 20230823
  4. PYLERA [Concomitant]
     Active Substance: BISMUTH SUBCITRATE POTASSIUM\METRONIDAZOLE\TETRACYCLINE HYDROCHLORIDE
     Indication: Helicobacter test positive
     Dosage: 390 MILLIGRAM
     Route: 048
     Dates: start: 20230327, end: 20230404
  5. OMEPRAZOLE [Concomitant]
     Active Substance: OMEPRAZOLE
     Indication: Dyspepsia
     Dosage: 20 MILLIGRAM
     Route: 048
     Dates: start: 20230327
  6. FAMOTIDINE [Concomitant]
     Active Substance: FAMOTIDINE
     Indication: Dyspepsia
     Dosage: 40 MILLIGRAM
     Route: 048
     Dates: start: 20230609
  7. LEVOSULPIRIDE [Concomitant]
     Active Substance: LEVOSULPIRIDE
     Indication: Dyspepsia
     Dosage: 50 MILLIGRAM
     Route: 048
     Dates: start: 20230609
  8. FENOFIBRATE [Concomitant]
     Active Substance: FENOFIBRATE
     Indication: Dyslipidaemia
     Dosage: 145 MILLIGRAM
     Route: 048
     Dates: start: 2023
  9. MAGALDRATE [Concomitant]
     Active Substance: MAGALDRATE
     Indication: Dyspepsia
     Dosage: 80 MILLIGRAM PER MILLILITRE
     Route: 048
     Dates: start: 20230327
  10. GOLIMUMAB [Concomitant]
     Active Substance: GOLIMUMAB
     Indication: Psoriatic arthropathy
     Dosage: 50 MILLIGRAM
     Route: 058
     Dates: start: 2022

REACTIONS (2)
  - Colitis [Not Recovered/Not Resolved]
  - Hereditary angioedema [Recovered/Resolved]

NARRATIVE: CASE EVENT DATE: 20220901
